FAERS Safety Report 21809922 (Version 3)
Quarter: 2023Q1

REPORT INFORMATION
  Report Type: Spontaneous
  Country: US (occurrence: US)
  Receive Date: 20230103
  Receipt Date: 20230314
  Transmission Date: 20230418
  Serious: No
  Sender: FDA-Public Use
  Company Number: US-002147023-NVSC2023US000887

PATIENT
  Sex: Male

DRUGS (1)
  1. MEKINIST [Suspect]
     Active Substance: TRAMETINIB DIMETHYL SULFOXIDE
     Indication: Nervous system neoplasm benign
     Dosage: 0.2 MG, QD
     Route: 048
     Dates: start: 20221111

REACTIONS (2)
  - Dry skin [Unknown]
  - Epistaxis [Unknown]
